FAERS Safety Report 21604596 (Version 2)
Quarter: 2022Q4

REPORT INFORMATION
  Report Type: Spontaneous
  Country: US (occurrence: US)
  Receive Date: 20221116
  Receipt Date: 20221122
  Transmission Date: 20230113
  Serious: Yes (Other)
  Sender: FDA-Public Use
  Company Number: US-SA-SAC20221111001321

PATIENT
  Age: 16 Year
  Sex: Female

DRUGS (2)
  1. DUPIXENT [Suspect]
     Active Substance: DUPILUMAB
     Indication: Dermatitis atopic
     Dosage: 300 MG, QOW
     Route: 058
     Dates: start: 20210626
  2. DUPIXENT [Suspect]
     Active Substance: DUPILUMAB
     Indication: Juvenile idiopathic arthritis

REACTIONS (6)
  - Juvenile idiopathic arthritis [Recovering/Resolving]
  - Asthma [Recovering/Resolving]
  - Impaired quality of life [Recovering/Resolving]
  - Sleep disorder [Unknown]
  - Dermatitis atopic [Recovering/Resolving]
  - Product use in unapproved indication [Unknown]

NARRATIVE: CASE EVENT DATE: 20210626
